FAERS Safety Report 18510012 (Version 1)
Quarter: 2020Q4

REPORT INFORMATION
  Report Type: Spontaneous
  Country: US (occurrence: US)
  Receive Date: 20201117
  Receipt Date: 20201117
  Transmission Date: 20210114
  Serious: No
  Sender: FDA-Public Use
  Company Number: US-009507513-2010USA011016

PATIENT
  Age: 79 Year
  Sex: Male

DRUGS (3)
  1. TICE BCG [Suspect]
     Active Substance: BACILLUS CALMETTE-GUERIN SUBSTRAIN TICE LIVE ANTIGEN
     Indication: BLADDER CANCER
     Dosage: ONCE PER WEEK, PER INSTILLATION ROUTE
  2. STERILE DILUENT (WATER) [Concomitant]
     Active Substance: WATER
  3. TICE BCG [Suspect]
     Active Substance: BACILLUS CALMETTE-GUERIN SUBSTRAIN TICE LIVE ANTIGEN
     Dosage: ONCE PER WEEK, PER INSTILLATION ROUTE
     Dates: start: 20201013

REACTIONS (4)
  - Wrong technique in product usage process [Unknown]
  - Product availability issue [Unknown]
  - Poor quality product administered [Unknown]
  - Pyrexia [Unknown]

NARRATIVE: CASE EVENT DATE: 20201013
